FAERS Safety Report 6537584-3 (Version None)
Quarter: 2010Q1

REPORT INFORMATION
  Report Type: 
  Country: None (occurrence: None)
  Receive Date: 20100114
  Receipt Date: 20100105
  Transmission Date: 20100710
  Serious: Yes (Disabling, Other)
  Sender: FDA-Public Use
  Company Number: US-MYLANLABS-2009S1019259

PATIENT
  Age: 75 Year
  Sex: Male
  Weight: 74.84 kg

DRUGS (15)
  1. CLONAZEPAM [Suspect]
     Indication: TREMOR
     Route: 048
     Dates: start: 20090707, end: 20090712
  2. CLONAZEPAM [Suspect]
     Indication: ANXIETY
     Route: 048
     Dates: start: 20090707, end: 20090712
  3. CLONAZEPAM [Suspect]
     Indication: MYOCLONUS
     Route: 048
     Dates: start: 20090707, end: 20090712
  4. CLONIDINE [Concomitant]
     Indication: BLOOD PRESSURE INCREASED
     Route: 048
  5. LISINOPRIL [Concomitant]
     Indication: BLOOD PRESSURE INCREASED
     Route: 048
  6. COMBIGAN [Concomitant]
     Indication: GLAUCOMA
     Route: 047
  7. GLIPIZIDE [Concomitant]
     Indication: DIABETES MELLITUS
     Route: 048
  8. TOPROL-XL [Concomitant]
     Indication: BLOOD PRESSURE INCREASED
     Route: 048
  9. METFORMIN [Concomitant]
     Indication: DIABETES MELLITUS
     Route: 048
  10. NORVASC [Concomitant]
     Indication: BLOOD PRESSURE INCREASED
     Route: 048
  11. DIOVAN [Concomitant]
     Indication: BLOOD PRESSURE INCREASED
     Route: 048
  12. LUMIGAN [Concomitant]
     Indication: GLAUCOMA
     Route: 047
  13. TEKTURNA /01763602/ [Concomitant]
     Indication: HYPERTENSION
  14. FOLPLEX 2.2 [Concomitant]
     Indication: BLOOD HOMOCYSTEINE INCREASED
  15. LOVAZA [Concomitant]
     Indication: TYPE IV HYPERLIPIDAEMIA

REACTIONS (19)
  - ABDOMINAL PAIN UPPER [None]
  - BALANCE DISORDER [None]
  - BLINDNESS [None]
  - BLOOD PRESSURE INCREASED [None]
  - CLUMSINESS [None]
  - DECREASED APPETITE [None]
  - DIZZINESS [None]
  - DRY EYE [None]
  - GENERAL PHYSICAL HEALTH DETERIORATION [None]
  - HEADACHE [None]
  - HYPERHIDROSIS [None]
  - MOVEMENT DISORDER [None]
  - PAIN IN EXTREMITY [None]
  - POOR QUALITY SLEEP [None]
  - PRURITUS [None]
  - SLEEP DISORDER [None]
  - URINE COLOUR ABNORMAL [None]
  - URINE OUTPUT DECREASED [None]
  - VISUAL IMPAIRMENT [None]
